FAERS Safety Report 4885825-0 (Version None)
Quarter: 2006Q1

REPORT INFORMATION
  Report Type: 
  Country: None (occurrence: None)
  Receive Date: 20060117
  Receipt Date: 20060110
  Transmission Date: 20060701
  Serious: Yes (Death, Hospitalization, Other)
  Sender: FDA-Public Use
  Company Number: 2005126354

PATIENT
  Age: 77 Year
  Sex: Male

DRUGS (7)
  1. LIPITOR [Suspect]
     Indication: HYPERCHOLESTEROLAEMIA
     Dosage: 10 MG PER DAY, ORAL
     Route: 048
     Dates: start: 20000918, end: 20050824
  2. MICARDIS [Concomitant]
  3. FAMOTIDINE [Concomitant]
  4. DOGMATYL (SULPIRIDE) [Concomitant]
  5. NORVASC [Concomitant]
  6. LENDORM [Concomitant]
  7. ESTAZOLAM [Concomitant]

REACTIONS (5)
  - BLOOD CHOLINESTERASE DECREASED [None]
  - METASTASES TO BONE [None]
  - PROSTATE CANCER METASTATIC [None]
  - PROSTATE CANCER RECURRENT [None]
  - RHABDOMYOLYSIS [None]
